FAERS Safety Report 25261320 (Version 2)
Quarter: 2025Q2

REPORT INFORMATION
  Report Type: Report from Study
  Country: US (occurrence: US)
  Receive Date: 20250501
  Receipt Date: 20250525
  Transmission Date: 20250716
  Serious: No
  Sender: ABBVIE
  Company Number: US-ABBVIE-6229636

PATIENT
  Age: 65 Year
  Sex: Female
  Weight: 62.595 kg

DRUGS (10)
  1. SKYRIZI [Suspect]
     Active Substance: RISANKIZUMAB-RZAA
     Indication: Crohn^s disease
     Route: 058
  2. SKYRIZI [Suspect]
     Active Substance: RISANKIZUMAB-RZAA
     Indication: Psoriatic arthropathy
     Route: 058
     Dates: start: 20241010
  3. CALCIUM\MAGNESIUM [Concomitant]
     Active Substance: CALCIUM\MAGNESIUM
     Indication: Osteoporosis
  4. AZATHIOPRINE [Suspect]
     Active Substance: AZATHIOPRINE
     Indication: Product used for unknown indication
     Route: 065
  5. POLYETHYLENE GLYCOL [Concomitant]
     Active Substance: POLYETHYLENE GLYCOL
     Indication: Constipation
  6. DIAZEPAM [Concomitant]
     Active Substance: DIAZEPAM
     Indication: Pelvic floor dysfunction
  7. ESTRADIOL [Concomitant]
     Active Substance: ESTRADIOL
     Indication: Menopausal symptoms
  8. OXYTROL [Concomitant]
     Active Substance: OXYBUTYNIN
     Indication: Hypertonic bladder
  9. LUTEIN [Concomitant]
     Active Substance: LUTEIN
     Indication: Eye disorder
  10. Omega 3 DHA fish oil [Concomitant]
     Indication: Product used for unknown indication

REACTIONS (15)
  - Arthropathy [Unknown]
  - Abdominal adhesions [Not Recovered/Not Resolved]
  - Oedema peripheral [Unknown]
  - Urinary tract infection [Recovered/Resolved]
  - Urinary tract infection [Recovering/Resolving]
  - Pulmonary granuloma [Not Recovered/Not Resolved]
  - Inflammation [Not Recovered/Not Resolved]
  - Optic nerve injury [Recovering/Resolving]
  - Osteoporosis [Not Recovered/Not Resolved]
  - Oedema peripheral [Unknown]
  - Adverse drug reaction [Recovered/Resolved]
  - Joint lock [Unknown]
  - Hand deformity [Unknown]
  - Finger deformity [Unknown]
  - Drug ineffective [Recovering/Resolving]

NARRATIVE: CASE EVENT DATE: 20241101
